FAERS Safety Report 4705499-9 (Version None)
Quarter: 2005Q2

REPORT INFORMATION
  Report Type: 
  Country: None (occurrence: None)
  Receive Date: 20050629
  Receipt Date: 20041207
  Transmission Date: 20051028
  Serious: Yes (Death)
  Sender: FDA-Public Use
  Company Number: 200419404US

PATIENT
  Age: 92 Year
  Sex: Female
  Weight: 73.6 kg

DRUGS (10)
  1. ENOXAPARIN SODIUM [Suspect]
     Indication: THROMBOSIS PROPHYLAXIS
     Dosage: 40 MG/DAY; SC
     Route: 058
     Dates: start: 20041102, end: 20041118
  2. ENOXAPARIN SODIUM [Suspect]
     Indication: THROMBOSIS PROPHYLAXIS
     Dosage: QD; SC
     Route: 058
     Dates: start: 20041119, end: 20041206
  3. ENOXAPARIN SODIUM [Suspect]
     Indication: HYPERTENSION
     Dosage: 40 MG/DAY; SC
     Route: 058
     Dates: start: 20041102, end: 20041118
  4. ENOXAPARIN SODIUM [Suspect]
     Indication: THROMBOSIS PROPHYLAXIS
     Dosage: QD; SC
     Route: 058
     Dates: start: 20041119, end: 20041206
  5. DILTIAZEM [Suspect]
     Indication: HYPERTENSION
     Dosage: 120 MG/DAY; PO
     Route: 048
     Dates: start: 20041102, end: 20041206
  6. DIGOXIN [Suspect]
     Indication: ATRIAL FIBRILLATION
     Dosage: 0.25 MG/DAY; PO
     Route: 048
     Dates: start: 20041102, end: 20041206
  7. PEPCID [Concomitant]
  8. DOCUSATE SODIUM [Concomitant]
  9. CIPRO [Concomitant]
  10. MACROBID [Concomitant]

REACTIONS (5)
  - ARRHYTHMIA [None]
  - CARDIAC ARREST [None]
  - LOSS OF CONSCIOUSNESS [None]
  - PULMONARY EMBOLISM [None]
  - URINARY TRACT INFECTION [None]
